FAERS Safety Report 8058260-4 (Version None)
Quarter: 2012Q1

REPORT INFORMATION
  Report Type: 
  Country: None (occurrence: None)
  Receive Date: 20120112
  Receipt Date: 20120109
  Transmission Date: 20120608
  Serious: Yes (Hospitalization)
  Sender: FDA-Public Use
  Company Number: 2011SP058401

PATIENT
  Age: 53 Year
  Sex: Female

DRUGS (3)
  1. BOCEPREVIR (SCH-503034) (200 MG) [Suspect]
     Indication: HEPATITIS C
     Dosage: 800 MG, TID, PO
     Route: 048
     Dates: start: 20111202, end: 20111211
  2. PEG-INTRON [Suspect]
     Indication: HEPATITIS C
     Dosage: 80 MCG, QW
     Dates: start: 20111107, end: 20111211
  3. RIBAVIRIN [Suspect]
     Indication: HEPATITIS C
     Dosage: 1000 MG, QD
     Dates: start: 20111107, end: 20111211

REACTIONS (3)
  - HAEMORRHAGIC EROSIVE GASTRITIS [None]
  - MELAENA [None]
  - ANAEMIA [None]
